FAERS Safety Report 9887815 (Version 3)
Quarter: 2021Q3

REPORT INFORMATION
  Report Type: Other
  Country: US (occurrence: US)
  Receive Date: 20140211
  Receipt Date: 20210930
  Transmission Date: 20211014
  Serious: Yes (Hospitalization)
  Sender: FDA-Public Use
  Company Number: US-ROCHE-1226185

PATIENT
  Age: 22 Year
  Sex: Female
  Weight: 55.84 kg

DRUGS (8)
  1. NAPROXEN. [Suspect]
     Active Substance: NAPROXEN
     Indication: INFLAMMATION
     Route: 048
     Dates: start: 20130227, end: 20130326
  2. PREDNISONE. [Concomitant]
     Active Substance: PREDNISONE
     Indication: RHEUMATOID ARTHRITIS
     Route: 048
     Dates: start: 20130227, end: 20130326
  3. PREDNISONE. [Concomitant]
     Active Substance: PREDNISONE
     Route: 048
     Dates: start: 20130617, end: 20131116
  4. BETAMETHASONE. [Concomitant]
     Active Substance: BETAMETHASONE
     Dates: start: 20130904, end: 20130904
  5. ZOFRAN [Concomitant]
     Active Substance: ONDANSETRON HYDROCHLORIDE
     Indication: NAUSEA
     Dosage: 1 PILL EVERY 6 HOURS
     Route: 048
     Dates: start: 20130408, end: 20130520
  6. FOLIC ACID. [Concomitant]
     Active Substance: FOLIC ACID
     Route: 048
     Dates: start: 20130420, end: 20131116
  7. PLAQUENIL [Concomitant]
     Active Substance: HYDROXYCHLOROQUINE SULFATE
     Indication: RHEUMATOID ARTHRITIS
     Route: 048
     Dates: start: 20130617, end: 20131116
  8. ACTEMRA [Suspect]
     Active Substance: TOCILIZUMAB
     Indication: RHEUMATOID ARTHRITIS
     Route: 042
     Dates: start: 20130227, end: 20130326

REACTIONS (5)
  - Nausea [Unknown]
  - Vomiting [Unknown]
  - Rheumatoid arthritis [Unknown]
  - Vaginal infection [Unknown]
  - Maternal exposure during pregnancy [Unknown]

NARRATIVE: CASE EVENT DATE: 20130408
